FAERS Safety Report 22918755 (Version 4)
Quarter: 2023Q4

REPORT INFORMATION
  Report Type: Spontaneous
  Country: US (occurrence: US)
  Receive Date: 20230907
  Receipt Date: 20231002
  Transmission Date: 20240110
  Serious: No
  Sender: FDA-Public Use
  Company Number: US-Calliditas-2023CAL01119

PATIENT
  Age: 22 Year
  Sex: Male
  Weight: 49.9 kg

DRUGS (2)
  1. TARPEYO [Suspect]
     Active Substance: BUDESONIDE
     Indication: IgA nephropathy
     Dosage: 16MG (4MG CAPSULES) ONCE DAILY
     Route: 048
     Dates: start: 20230829
  2. LOSARTAN [Concomitant]
     Active Substance: LOSARTAN

REACTIONS (4)
  - Muscular weakness [Recovering/Resolving]
  - Fatigue [Not Recovered/Not Resolved]
  - Hunger [Not Recovered/Not Resolved]
  - Myalgia [Recovered/Resolved]

NARRATIVE: CASE EVENT DATE: 20230830
